FAERS Safety Report 20833063 (Version 1)
Quarter: 2022Q2

REPORT INFORMATION
  Report Type: Report from Study
  Country: US (occurrence: US)
  Receive Date: 20220516
  Receipt Date: 20220516
  Transmission Date: 20220721
  Serious: Yes (Other)
  Sender: FDA-Public Use
  Company Number: US-MYLANLABS-2022M1034595

PATIENT
  Sex: Female

DRUGS (1)
  1. AMNESTEEM [Suspect]
     Active Substance: ISOTRETINOIN
     Indication: Product used for unknown indication
     Dosage: 40 MILLIGRAM, BID
     Dates: start: 202201, end: 20220504

REACTIONS (3)
  - Maternal exposure during pregnancy [Unknown]
  - Tearfulness [Not Recovered/Not Resolved]
  - Depression [Not Recovered/Not Resolved]

NARRATIVE: CASE EVENT DATE: 20220101
